FAERS Safety Report 23319448 (Version 1)
Quarter: 2023Q4

REPORT INFORMATION
  Report Type: Spontaneous
  Country: US (occurrence: None)
  Receive Date: 20231220
  Receipt Date: 20231220
  Transmission Date: 20240109
  Serious: No
  Sender: FDA-Public Use
  Company Number: US-ROCHE-3452404

PATIENT
  Age: 75 Year
  Sex: Male

DRUGS (1)
  1. LUNSUMIO [Suspect]
     Active Substance: MOSUNETUZUMAB-AXGB
     Indication: Follicular lymphoma
     Dosage: LAST DOSE ON 31/OCT/2023
     Route: 042
     Dates: start: 202307

REACTIONS (1)
  - Human rhinovirus test positive [Not Recovered/Not Resolved]

NARRATIVE: CASE EVENT DATE: 20231031
